FAERS Safety Report 17213253 (Version 1)
Quarter: 2019Q4

REPORT INFORMATION
  Report Type: Report from Study
  Country: JP (occurrence: JP)
  Receive Date: 20191230
  Receipt Date: 20191230
  Transmission Date: 20200122
  Serious: Yes (Hospitalization, Other)
  Sender: FDA-Public Use
  Company Number: JP-JNJFOC-20191232585

PATIENT
  Age: 80 Year
  Sex: Male
  Weight: 67 kg

DRUGS (18)
  1. METHYCOBAL [Concomitant]
     Active Substance: METHYLCOBALAMIN
     Dosage: DAILY DOSE 1500  G
  2. NEUTROGIN [Concomitant]
     Active Substance: LENOGRASTIM
     Dosage: DAILY DOSE 16 IU
     Route: 048
  3. ESOMEPRAZOLE. [Concomitant]
     Active Substance: ESOMEPRAZOLE MAGNESIUM
     Dosage: DAILY DOSE 20 MG
     Route: 048
  4. THEOPHYLLINE [Concomitant]
     Active Substance: THEOPHYLLINE ANHYDROUS
     Dosage: DAILY DOSE 400 MG
     Route: 048
  5. URIEF [Concomitant]
     Active Substance: SILODOSIN
     Dosage: DAILY DOSE 8 MG
     Route: 048
     Dates: start: 20170605
  6. RIVAROXABAN [Suspect]
     Active Substance: RIVAROXABAN
     Indication: DEEP VEIN THROMBOSIS
     Dosage: 15 MG, QD
     Route: 048
     Dates: start: 20170620, end: 20170802
  7. LIMAPROST ALFADEX [Concomitant]
     Active Substance: LIMAPROST
     Dosage: DAILY DOSE 60  G
     Route: 048
  8. HOKUNALIN [TULOBUTEROL] [Concomitant]
     Active Substance: TULOBUTEROL
     Dosage: DAILY DOSE 2 MG
     Route: 003
  9. AMLODIPINE [Concomitant]
     Active Substance: AMLODIPINE BESYLATE
     Dosage: DAILY DOSE 5 MG
     Route: 048
     Dates: start: 20180823
  10. RIVAROXABAN [Suspect]
     Active Substance: RIVAROXABAN
     Indication: PULMONARY EMBOLISM
     Dosage: 30MG/DAY, TWICE DAILY
     Route: 048
     Dates: start: 20170530, end: 20170619
  11. RIVAROXABAN [Suspect]
     Active Substance: RIVAROXABAN
     Dosage: 15 MG, QD
     Route: 048
     Dates: start: 20170805, end: 20170831
  12. FERROUS SODIUM CITRATE [Concomitant]
     Active Substance: SODIUM FERROUS CITRATE
     Dosage: DAILY DOSE 100 MG
     Route: 048
     Dates: start: 20170613
  13. VALSARTAN. [Concomitant]
     Active Substance: VALSARTAN
     Dosage: DAILY DOSE 80 MG
     Route: 048
     Dates: start: 20170601, end: 20170628
  14. METHYCOBAL [Concomitant]
     Active Substance: METHYLCOBALAMIN
     Dosage: DAILY DOSE 20 MG
     Route: 048
     Dates: start: 20170531
  15. AMLODIPINE [Concomitant]
     Active Substance: AMLODIPINE BESYLATE
     Dosage: DAILY DOSE 2.5 MG
     Route: 048
     Dates: start: 20170727, end: 20180822
  16. RIVAROXABAN [Suspect]
     Active Substance: RIVAROXABAN
     Dosage: 15 MG, QD
     Route: 048
     Dates: start: 20170902
  17. AVOLVE [Concomitant]
     Active Substance: DUTASTERIDE
     Dosage: DAILY DOSE .5 MG
     Route: 048
     Dates: start: 20170703
  18. VALHYDIO [Concomitant]
     Active Substance: HYDROCHLOROTHIAZIDE\VALSARTAN
     Dosage: DAILY DOSE 80 MG
     Route: 048
     Dates: start: 20170629

REACTIONS (3)
  - Adenocarcinoma of colon [Not Recovered/Not Resolved]
  - Blood pressure increased [Not Recovered/Not Resolved]
  - Tumour haemorrhage [Not Recovered/Not Resolved]

NARRATIVE: CASE EVENT DATE: 20170703
